FAERS Safety Report 6160898-6 (Version None)
Quarter: 2009Q2

REPORT INFORMATION
  Report Type: 
  Country: None (occurrence: None)
  Receive Date: 20090420
  Receipt Date: 20090323
  Transmission Date: 20091009
  Serious: No
  Sender: FDA-Public Use
  Company Number: US-BAYER-200910930BCC

PATIENT
  Age: 37 Year
  Sex: Female
  Weight: 54 kg

DRUGS (2)
  1. ALEVE (CAPLET) [Suspect]
     Indication: POSTOPERATIVE ANALGESIA
     Dosage: AS USED: 440-220 MG  UNIT DOSE: 220 MG
     Route: 048
     Dates: start: 20090322
  2. VITAMINS [Concomitant]

REACTIONS (1)
  - DYSPEPSIA [None]
